FAERS Safety Report 6263305-8 (Version None)
Quarter: 2009Q3

REPORT INFORMATION
  Report Type: 
  Country: None (occurrence: None)
  Receive Date: 20090710
  Receipt Date: 20090511
  Transmission Date: 20100115
  Serious: No
  Sender: FDA-Public Use
  Company Number: A0778960A

PATIENT
  Age: 64 Year
  Sex: Male

DRUGS (11)
  1. REQUIP XL [Suspect]
     Indication: PARKINSON'S DISEASE
     Dosage: 2MG PER DAY
     Route: 048
     Dates: start: 20081101
  2. STALEVO 100 [Concomitant]
  3. SINEMET [Concomitant]
  4. SELEGILINE [Concomitant]
  5. CLONAZEPAM [Concomitant]
  6. INDERAL [Concomitant]
  7. NORTRIPTYLINE HCL [Concomitant]
  8. FISH OIL [Concomitant]
  9. COENZYME Q10 [Concomitant]
  10. NIACIN [Concomitant]
  11. REFRESH [Concomitant]

REACTIONS (4)
  - DRUG INEFFECTIVE [None]
  - DYSKINESIA [None]
  - FREEZING PHENOMENON [None]
  - RESTLESSNESS [None]
